FAERS Safety Report 8555933-1 (Version None)
Quarter: 2012Q3

REPORT INFORMATION
  Report Type: 
  Country: None (occurrence: None)
  Receive Date: 20120801
  Receipt Date: 20120725
  Transmission Date: 20120928
  Serious: No
  Sender: FDA-Public Use
  Company Number: US-BIOGENIDEC-2012BI027357

PATIENT
  Sex: Female

DRUGS (4)
  1. AVONEX [Suspect]
     Indication: MULTIPLE SCLEROSIS
     Route: 030
     Dates: start: 20051128, end: 20051229
  2. AVONEX [Suspect]
     Route: 030
     Dates: start: 20120725
  3. AVONEX [Suspect]
     Route: 030
     Dates: start: 20090714, end: 20101102
  4. AVONEX [Suspect]
     Route: 030
     Dates: start: 20070516, end: 20070601

REACTIONS (1)
  - TREMOR [None]
